FAERS Safety Report 20382382 (Version 4)
Quarter: 2022Q1

REPORT INFORMATION
  Report Type: Spontaneous
  Country: US (occurrence: US)
  Receive Date: 20220127
  Receipt Date: 20220215
  Transmission Date: 20220423
  Serious: Yes (Other)
  Sender: FDA-Public Use
  Company Number: US-SA-SAC20220121000832

PATIENT
  Age: 81 Year
  Sex: Female

DRUGS (10)
  1. DUPIXENT [Suspect]
     Active Substance: DUPILUMAB
     Indication: Pemphigoid
     Dosage: 600 MG, 1X
     Route: 058
     Dates: start: 20220111, end: 20220111
  2. DUPIXENT [Suspect]
     Active Substance: DUPILUMAB
     Dosage: 300 MG, QOW
     Route: 058
  3. MELATONIN [Concomitant]
     Active Substance: MELATONIN
     Dosage: 10 MG
     Route: 060
  4. ZINC [Concomitant]
     Active Substance: ZINC
     Dosage: 66 MG
  5. VITAMIN D2 [Concomitant]
     Active Substance: ERGOCALCIFEROL
     Dosage: 10 MG
  6. VITAMIN C [Concomitant]
     Active Substance: ASCORBIC ACID
     Dosage: 1000 MG
  7. COVID-19 VACCINE [Concomitant]
     Indication: Immunisation
  8. AMOXICILLIN [Concomitant]
     Active Substance: AMOXICILLIN
  9. MUPIROCIN [Concomitant]
     Active Substance: MUPIROCIN
  10. CLOBETASOL PROPIONATE [Concomitant]
     Active Substance: CLOBETASOL PROPIONATE

REACTIONS (11)
  - Pemphigoid [Unknown]
  - Bacterial infection [Unknown]
  - Skin atrophy [Unknown]
  - Scratch [Unknown]
  - Depressed mood [Unknown]
  - Erythema [Unknown]
  - Pruritus [Unknown]
  - Rash [Unknown]
  - Rash macular [Unknown]
  - Drug ineffective [Unknown]
  - Product use in unapproved indication [Unknown]

NARRATIVE: CASE EVENT DATE: 20220101
